FAERS Safety Report 4817170-3 (Version None)
Quarter: 2005Q4

REPORT INFORMATION
  Report Type: 
  Country: None (occurrence: None)
  Receive Date: 20051101
  Receipt Date: 20050907
  Transmission Date: 20060501
  Serious: Yes (Hospitalization)
  Sender: FDA-Public Use
  Company Number: 2005SE05063

PATIENT
  Age: 19008 Day
  Sex: Male

DRUGS (7)
  1. BLOPRESS TABLETS 8 [Suspect]
     Indication: HYPERTENSION
     Route: 048
     Dates: start: 20050704, end: 20050902
  2. TAKEPRON OD TABLETS 15 [Concomitant]
     Indication: PROPHYLAXIS AGAINST GASTROINTESTINAL ULCER
     Route: 048
     Dates: start: 20050901
  3. NORVASC [Concomitant]
     Indication: HYPERTENSION
     Route: 048
     Dates: start: 20050629, end: 20050804
  4. NORVASC [Concomitant]
     Route: 048
     Dates: start: 20050902
  5. NAUZELIN [Concomitant]
     Route: 054
     Dates: start: 20050628, end: 20050825
  6. MAGLAX [Concomitant]
     Indication: CONSTIPATION PROPHYLAXIS
     Route: 048
     Dates: start: 20050831
  7. VOLTAREN SUPPO [Concomitant]
     Indication: HEADACHE
     Route: 054
     Dates: start: 20050711, end: 20050908

REACTIONS (4)
  - ALCOHOL USE [None]
  - ORAL INTAKE REDUCED [None]
  - PANCREATITIS [None]
  - PYREXIA [None]
